FAERS Safety Report 16983042 (Version 1)
Quarter: 2019Q4

REPORT INFORMATION
  Report Type: Spontaneous
  Country: GB (occurrence: GB)
  Receive Date: 20191101
  Receipt Date: 20191101
  Transmission Date: 20200122
  Serious: Yes (Hospitalization)
  Sender: FDA-Public Use
  Company Number: GB-MYLANLABS-2019M1103461

PATIENT
  Age: 71 Year
  Sex: Female

DRUGS (7)
  1. DALTEPARIN SODIUM [Concomitant]
     Active Substance: DALTEPARIN SODIUM
     Indication: PULMONARY EMBOLISM
     Dosage: 12,500UNITS/0.5ML SOLUTION
     Route: 058
  2. CASSIA SENNA [Concomitant]
     Active Substance: HERBALS\SENNOSIDES
     Dosage: AT NIGHT
  3. LANSOPRAZOLE. [Concomitant]
     Active Substance: LANSOPRAZOLE
     Dosage: 30 MILLIGRAM, QD
     Route: 048
  4. ATORVASTATIN [Concomitant]
     Active Substance: ATORVASTATIN
     Dosage: AT NIGHT
     Route: 048
  5. IMATINIB. [Suspect]
     Active Substance: IMATINIB MESYLATE
     Indication: GASTROINTESTINAL STROMAL TUMOUR
  6. TRAMADOL. [Concomitant]
     Active Substance: TRAMADOL
     Dosage: 50-100 MG QID
     Route: 048
  7. DOCUSATE [Concomitant]
     Active Substance: DOCUSATE
     Dosage: 400 MILLIGRAM, QD
     Route: 048

REACTIONS (5)
  - Pulmonary congestion [Unknown]
  - Pleural thickening [Unknown]
  - Dyspnoea [Unknown]
  - Bronchiectasis [Unknown]
  - Interstitial lung disease [Unknown]
